FAERS Safety Report 6170086-5 (Version None)
Quarter: 2009Q2

REPORT INFORMATION
  Report Type: 
  Country: None (occurrence: None)
  Receive Date: 20090428
  Receipt Date: 20090422
  Transmission Date: 20091009
  Serious: Yes (Other)
  Sender: FDA-Public Use
  Company Number: A0780661A

PATIENT
  Sex: Male

DRUGS (1)
  1. AROPAX [Suspect]
     Indication: DEPRESSION
     Dosage: 10MG PER DAY
     Route: 048
     Dates: start: 20070201

REACTIONS (2)
  - AGGRESSION [None]
  - NERVOUSNESS [None]
